FAERS Safety Report 6240354-7 (Version None)
Quarter: 2009Q2

REPORT INFORMATION
  Report Type: 
  Country: None (occurrence: None)
  Receive Date: 20090623
  Receipt Date: 20080819
  Transmission Date: 20091009
  Serious: No
  Sender: FDA-Public Use
  Company Number: US-ASTRAZENECA-2008UW16980

PATIENT
  Age: 12 Year
  Sex: Female

DRUGS (1)
  1. PULMICORT FLEXHALER [Suspect]
     Dosage: 90 MCG ONE PUFF DAILY
     Route: 055

REACTIONS (3)
  - ASTHENIA [None]
  - FATIGUE [None]
  - SYNCOPE [None]
